FAERS Safety Report 6329333-9 (Version None)
Quarter: 2009Q3

REPORT INFORMATION
  Report Type: 
  Country: None (occurrence: None)
  Receive Date: 20090826
  Receipt Date: 20090821
  Transmission Date: 20100115
  Serious: Yes (Hospitalization)
  Sender: FDA-Public Use
  Company Number: IT-WATSON-2009-06228

PATIENT
  Age: 65 Year
  Sex: Male

DRUGS (3)
  1. FLUOROURACIL [Suspect]
     Indication: RECTAL CANCER
     Dosage: UNK
     Dates: start: 20070606, end: 20071206
  2. OXALIPLATIN [Suspect]
     Indication: RECTAL CANCER
     Dosage: UNK
     Dates: start: 20070606, end: 20071206
  3. LEUCOVORIN CALCIUM [Suspect]
     Indication: RECTAL CANCER
     Dosage: UNK
     Dates: start: 20060601, end: 20071206

REACTIONS (1)
  - INTERSTITIAL LUNG DISEASE [None]
